FAERS Safety Report 4350833-5 (Version None)
Quarter: 2004Q2

REPORT INFORMATION
  Report Type: 
  Country: None (occurrence: None)
  Receive Date: 20040427
  Receipt Date: 20040412
  Transmission Date: 20050107
  Serious: Yes (Other)
  Sender: FDA-Public Use
  Company Number: 2004022594

PATIENT
  Age: 32 Year
  Sex: Male

DRUGS (3)
  1. ZIPRASIDONE [Suspect]
     Indication: SCHIZOPHRENIA
     Dosage: 160 MG (BID), ORAL
     Route: 048
     Dates: start: 20030326
  2. FLUOXETINE [Concomitant]
  3. DIAZEPAM [Concomitant]

REACTIONS (3)
  - AMNESIA [None]
  - DEPRESSED LEVEL OF CONSCIOUSNESS [None]
  - PETIT MAL EPILEPSY [None]
